FAERS Safety Report 10258648 (Version 1)
Quarter: 2014Q2

REPORT INFORMATION
  Report Type: Spontaneous
  Country: US (occurrence: US)
  Receive Date: 20140625
  Receipt Date: 20140625
  Transmission Date: 20141212
  Serious: Yes (Hospitalization)
  Sender: FDA-Public Use
  Company Number: US-TEVA-490193USA

PATIENT
  Age: 69 Year
  Sex: Male

DRUGS (2)
  1. BENDAMUSTINE HYDROCHLORIDE [Suspect]
     Indication: CHRONIC LYMPHOCYTIC LEUKAEMIA
     Dosage: 70 MG/M2, ON DAY 1 AND DAY 2 (EVERY 28 DAYS)
     Route: 065
     Dates: start: 201004
  2. RITUXIMAB [Suspect]
     Indication: CHRONIC LYMPHOCYTIC LEUKAEMIA
     Dosage: 350 MG/M2, ON DAY 1 (EVERY 28 DAYS)
     Route: 065

REACTIONS (1)
  - Cardiomyopathy [Unknown]
